FAERS Safety Report 4331781-3 (Version None)
Quarter: 2004Q2

REPORT INFORMATION
  Report Type: 
  Country: None (occurrence: None)
  Receive Date: 20040405
  Receipt Date: 20030725
  Transmission Date: 20050107
  Serious: No
  Sender: FDA-Public Use
  Company Number: US-GLAXOSMITHKLINE-A0419369A

PATIENT
  Age: 70 Year
  Sex: Female

DRUGS (2)
  1. FLOVENT [Suspect]
     Indication: ASTHMA
     Dosage: 220MCG TWICE PER DAY
     Route: 055
  2. FLONASE [Concomitant]
     Route: 045

REACTIONS (3)
  - BRONCHITIS [None]
  - NASAL CONGESTION [None]
  - RESPIRATORY DISORDER [None]
